FAERS Safety Report 18611627 (Version 1)
Quarter: 2020Q4

REPORT INFORMATION
  Report Type: Spontaneous
  Country: GB (occurrence: GB)
  Receive Date: 20201214
  Receipt Date: 20201214
  Transmission Date: 20210114
  Serious: Yes (Other)
  Sender: FDA-Public Use
  Company Number: GB-ENDO PHARMACEUTICALS INC-2020-007764

PATIENT
  Age: 48 Year
  Sex: Male
  Weight: 62 kg

DRUGS (1)
  1. AVEED [Suspect]
     Active Substance: TESTOSTERONE UNDECANOATE
     Indication: TRANSGENDER HORMONAL THERAPY
     Dosage: 1000 MG, UNKNOWN
     Route: 030
     Dates: start: 20201113, end: 20201113

REACTIONS (7)
  - Paraesthesia oral [Unknown]
  - Pruritus [Unknown]
  - Pharyngeal paraesthesia [Unknown]
  - Swelling [Unknown]
  - Chest discomfort [Unknown]
  - Throat irritation [Unknown]
  - Hypersensitivity [Recovered/Resolved]

NARRATIVE: CASE EVENT DATE: 20201113
